FAERS Safety Report 5242165-8 (Version None)
Quarter: 2007Q1

REPORT INFORMATION
  Report Type: 
  Country: None (occurrence: None)
  Receive Date: 20070213
  Receipt Date: 20070202
  Transmission Date: 20070707
  Serious: Yes (Life-Threatening, Hospitalization)
  Sender: FDA-Public Use
  Company Number: 2007EU000305

PATIENT
  Age: 24 Year
  Sex: Male

DRUGS (15)
  1. FK506 (TACROLIMUS) CAPSULE [Suspect]
     Indication: LIVER TRANSPLANT
     Dosage: 1 MG, UID/QD, ORAL
     Route: 048
     Dates: start: 20051203, end: 20060618
  2. MYCOPHENOLATE MOFETIL [Suspect]
     Indication: LIVER TRANSPLANT
     Dosage: SEE IMAGE
     Dates: start: 20051203, end: 20051203
  3. MYCOPHENOLATE MOFETIL [Suspect]
     Indication: LIVER TRANSPLANT
     Dosage: SEE IMAGE
     Dates: start: 20051204, end: 20060618
  4. METHYLPREDNISOLONE [Suspect]
     Indication: LIVER TRANSPLANT
     Dosage: 20 MG, UID/QD
     Dates: start: 20051203, end: 20051226
  5. PREDNISONE TAB [Suspect]
     Indication: LIVER TRANSPLANT
     Dosage: 5 MG, UID/QD
     Dates: start: 20051227, end: 20060618
  6. TAZOCILLINE (PIPERACILLIN SODIUM, TAZOBACTAM SODIUM) [Concomitant]
  7. TARGOCID [Concomitant]
  8. ABELCET [Concomitant]
  9. ZOVIRAX [Concomitant]
  10. VALACYCLOVIR HCL [Concomitant]
  11. HEPARIN [Concomitant]
  12. PANTOPRAZOLE SODIUM [Concomitant]
  13. BUMETANIDE [Concomitant]
  14. MORPHINE [Concomitant]
  15. MUCOMYST [Concomitant]

REACTIONS (5)
  - ANEURYSM RUPTURED [None]
  - CANDIDIASIS [None]
  - HAEMOGLOBIN DECREASED [None]
  - HEPATIC ARTERY ANEURYSM [None]
  - SHOCK [None]
